FAERS Safety Report 15873558 (Version 1)
Quarter: 2019Q1

REPORT INFORMATION
  Report Type: Other
  Country: US (occurrence: US)
  Receive Date: 20190126
  Receipt Date: 20190126
  Transmission Date: 20190417
  Serious: No
  Sender: FDA-Public Use
  Company Number: US-ACORDA-ACO_150696_2018

PATIENT
  Sex: Female

DRUGS (1)
  1. AMPYRA [Suspect]
     Active Substance: DALFAMPRIDINE
     Indication: MULTIPLE SCLEROSIS
     Dosage: 10 MG, Q 12 HRS
     Route: 065
     Dates: start: 20180430, end: 20180602

REACTIONS (10)
  - Abdominal discomfort [Unknown]
  - Gait disturbance [Unknown]
  - Pruritus [Unknown]
  - Headache [Unknown]
  - Vomiting [Unknown]
  - Balance disorder [Unknown]
  - Drug ineffective [Unknown]
  - Tremor [Unknown]
  - Feeling abnormal [Unknown]
  - Dizziness [Unknown]
